FAERS Safety Report 6160591-X (Version None)
Quarter: 2009Q2

REPORT INFORMATION
  Report Type: 
  Country: None (occurrence: None)
  Receive Date: 20090420
  Receipt Date: 20090410
  Transmission Date: 20091009
  Serious: Yes (Other)
  Sender: FDA-Public Use
  Company Number: US-BAYER-200911158BCC

PATIENT
  Age: 28 Year
  Sex: Male
  Weight: 73 kg

DRUGS (2)
  1. ALKA-SELTZER PLUS DAY [Suspect]
     Indication: NASOPHARYNGITIS
     Dosage: TOTAL DAILY DOSE: 8 DF  UNIT DOSE: 1 DF
     Route: 048
     Dates: start: 20090409
  2. ALKA-SELTZER PLUS NIGHT [Suspect]
     Indication: NASOPHARYNGITIS
     Dosage: TOTAL DAILY DOSE: 2 DF  UNIT DOSE: 1 DF
     Route: 048
     Dates: start: 20090409

REACTIONS (4)
  - DEAFNESS [None]
  - EAR CONGESTION [None]
  - HEADACHE [None]
  - TINNITUS [None]
